FAERS Safety Report 22148708 (Version 19)
Quarter: 2025Q1

REPORT INFORMATION
  Report Type: Report from Study
  Country: US (occurrence: US)
  Receive Date: 20230328
  Receipt Date: 20250228
  Transmission Date: 20250409
  Serious: Yes (Other)
  Sender: TAKEDA
  Company Number: US-TAKEDA-US201914598

PATIENT
  Age: 55 Year
  Sex: Female
  Weight: 76 kg

DRUGS (45)
  1. HUMAN IMMUNOGLOBULIN G\HYALURONIDASE RECOMBINANT HUMAN [Suspect]
     Active Substance: HUMAN IMMUNOGLOBULIN G\HYALURONIDASE (HUMAN RECOMBINANT)
     Indication: Primary immunodeficiency syndrome
  2. CUVITRU [Suspect]
     Active Substance: HUMAN IMMUNOGLOBULIN G
     Indication: Immunodeficiency common variable
     Dosage: 16 GRAM, 1/WEEK
  3. CUVITRU [Suspect]
     Active Substance: HUMAN IMMUNOGLOBULIN G
  4. GAMMAGARD LIQUID [Suspect]
     Active Substance: HUMAN IMMUNOGLOBULIN G
     Indication: Immunodeficiency common variable
  5. GAMMAGARD LIQUID [Suspect]
     Active Substance: HUMAN IMMUNOGLOBULIN G
     Indication: Primary immunodeficiency syndrome
  6. GAMMAGARD LIQUID [Suspect]
     Active Substance: HUMAN IMMUNOGLOBULIN G
     Indication: Myasthenia gravis
     Dosage: 16 GRAM, 1/WEEK
  7. GAMMAGARD LIQUID [Suspect]
     Active Substance: HUMAN IMMUNOGLOBULIN G
     Dosage: 80 GRAM, Q3WEEKS
  8. GAMMAGARD LIQUID [Suspect]
     Active Substance: HUMAN IMMUNOGLOBULIN G
     Dosage: 1000 MILLIGRAM/KILOGRAM, Q3WEEKS
  9. GAMMAGARD LIQUID [Suspect]
     Active Substance: HUMAN IMMUNOGLOBULIN G
     Dosage: 1000 MILLIGRAM/KILOGRAM, Q4WEEKS
  10. GAMMAGARD LIQUID [Suspect]
     Active Substance: HUMAN IMMUNOGLOBULIN G
  11. GAMMAGARD LIQUID [Suspect]
     Active Substance: HUMAN IMMUNOGLOBULIN G
  12. ACETAMINOPHEN [Concomitant]
     Active Substance: ACETAMINOPHEN
  13. EPINEPHRINE [Concomitant]
     Active Substance: EPINEPHRINE
  14. SODIUM CHLORIDE [Concomitant]
     Active Substance: SODIUM CHLORIDE
  15. AJOVY [Concomitant]
     Active Substance: FREMANEZUMAB-VFRM
  16. UBRELVY [Concomitant]
     Active Substance: UBROGEPANT
  17. VITAMIN D3 [Concomitant]
     Active Substance: CHOLECALCIFEROL
  18. BREO ELLIPTA [Concomitant]
     Active Substance: FLUTICASONE FUROATE\VILANTEROL TRIFENATATE
  19. OXCARBAZEPINE [Concomitant]
     Active Substance: OXCARBAZEPINE
  20. LIDOCAINE [Concomitant]
     Active Substance: LIDOCAINE
  21. HEPARIN [Concomitant]
     Active Substance: HEPARIN SODIUM
  22. MESTINON [Concomitant]
     Active Substance: PYRIDOSTIGMINE BROMIDE
  23. LEVOTHYROXINE SODIUM [Concomitant]
     Active Substance: LEVOTHYROXINE SODIUM
  24. Lmx [Concomitant]
  25. DIPHENHYDRAMINE HYDROCHLORIDE [Concomitant]
     Active Substance: DIPHENHYDRAMINE HYDROCHLORIDE
  26. KLONOPIN [Concomitant]
     Active Substance: CLONAZEPAM
  27. WELLBUTRIN [Concomitant]
     Active Substance: BUPROPION HYDROCHLORIDE
  28. ASPIRIN [Concomitant]
     Active Substance: ASPIRIN
  29. QUETIAPINE FUMARATE [Concomitant]
     Active Substance: QUETIAPINE FUMARATE
  30. LAMOTRIGINE [Concomitant]
     Active Substance: LAMOTRIGINE
  31. TIZANIDINE HYDROCHLORIDE [Concomitant]
     Active Substance: TIZANIDINE HYDROCHLORIDE
  32. HIZENTRA [Concomitant]
     Active Substance: HUMAN IMMUNOGLOBULIN G
  33. BOTOX [Concomitant]
     Active Substance: ONABOTULINUMTOXINA
  34. TIZANIDINE [Concomitant]
     Active Substance: TIZANIDINE
  35. DIPHENHYDRAMINE [Concomitant]
     Active Substance: DIPHENHYDRAMINE
  36. SEROQUEL [Concomitant]
     Active Substance: QUETIAPINE FUMARATE
  37. SIMVASTATIN [Concomitant]
     Active Substance: SIMVASTATIN
  38. LAMICTAL [Concomitant]
     Active Substance: LAMOTRIGINE
  39. ALBUTEROL [Concomitant]
     Active Substance: ALBUTEROL
  40. VITAMIN D [Concomitant]
     Active Substance: VITAMIN D NOS
  41. LEVOTHYROXINE [Concomitant]
     Active Substance: LEVOTHYROXINE
  42. TRILEPTAL [Concomitant]
     Active Substance: OXCARBAZEPINE
  43. GADOBUTROL [Concomitant]
     Active Substance: GADOBUTROL
  44. BENADRYL [Concomitant]
     Active Substance: DIPHENHYDRAMINE HYDROCHLORIDE
  45. PHENTERMINE [Concomitant]
     Active Substance: PHENTERMINE

REACTIONS (34)
  - Myasthenia gravis [Unknown]
  - Pulmonary fibrosis [Unknown]
  - Pneumonia [Unknown]
  - Fall [Unknown]
  - Muscle injury [Unknown]
  - Bone fragmentation [Unknown]
  - Haematoma [Unknown]
  - Respiratory disorder [Unknown]
  - Weight increased [Unknown]
  - Procedural complication [Unknown]
  - Infusion site irritation [Unknown]
  - Urinary incontinence [Unknown]
  - Confusional state [Unknown]
  - Disorientation [Unknown]
  - Urinary tract infection [Unknown]
  - Infusion site discharge [Unknown]
  - Dermatitis contact [Unknown]
  - Illness [Recovering/Resolving]
  - Pulmonary function test decreased [Unknown]
  - Crying [Unknown]
  - Movement disorder [Unknown]
  - Product dose omission issue [Unknown]
  - Inappropriate schedule of product administration [Unknown]
  - Rales [Unknown]
  - Heart rate increased [Recovering/Resolving]
  - Balance disorder [Unknown]
  - Infusion site haemorrhage [Unknown]
  - Migraine [Unknown]
  - Influenza like illness [Recovering/Resolving]
  - Nausea [Recovered/Resolved]
  - Vision blurred [Unknown]
  - Malaise [Unknown]
  - Depressed mood [Unknown]
  - Product use issue [Unknown]

NARRATIVE: CASE EVENT DATE: 20190502
